FAERS Safety Report 9644073 (Version 3)
Quarter: 2014Q2

REPORT INFORMATION
  Report Type: Spontaneous
  Country: SI (occurrence: SI)
  Receive Date: 20131024
  Receipt Date: 20140513
  Transmission Date: 20141212
  Serious: Yes (Hospitalization)
  Sender: FDA-Public Use
  Company Number: PHHY2013SI116508

PATIENT
  Sex: Female

DRUGS (3)
  1. GENTAMICIN [Suspect]
     Indication: SEPSIS NEONATAL
  2. AMPICILLIN [Suspect]
     Indication: SEPSIS NEONATAL
  3. PROSTIN E1 VR [Concomitant]
     Indication: HEART DISEASE CONGENITAL

REACTIONS (4)
  - General physical health deterioration [Unknown]
  - Meningitis streptococcal [Unknown]
  - Opisthotonus [Unknown]
  - Metabolic acidosis [Unknown]
